FAERS Safety Report 7043796-5 (Version None)
Quarter: 2010Q4

REPORT INFORMATION
  Report Type: 
  Country: None (occurrence: None)
  Receive Date: 20101008
  Receipt Date: 20101008
  Transmission Date: 20110411
  Serious: Yes (Other)
  Sender: FDA-Public Use
  Company Number: None

PATIENT
  Sex: Female
  Weight: 151.5014 kg

DRUGS (4)
  1. VENLAFAXINE [Suspect]
     Indication: ANXIETY
     Dosage: 225 MG ONCE QD PO
     Route: 048
     Dates: start: 20100711
  2. VENLAFAXINE [Suspect]
     Indication: DEPRESSION
     Dosage: 225 MG ONCE QD PO
     Route: 048
     Dates: start: 20100711
  3. VENLAFAXINE [Suspect]
     Indication: ANXIETY
     Dosage: 225 MG ONCE QD PO
     Route: 048
     Dates: start: 20100712
  4. VENLAFAXINE [Suspect]
     Indication: DEPRESSION
     Dosage: 225 MG ONCE QD PO
     Route: 048
     Dates: start: 20100712

REACTIONS (5)
  - ANXIETY [None]
  - CONDITION AGGRAVATED [None]
  - IRRITABILITY [None]
  - PRODUCT SUBSTITUTION ISSUE [None]
  - TREMOR [None]
